FAERS Safety Report 17941936 (Version 2)
Quarter: 2020Q3

REPORT INFORMATION
  Report Type: Spontaneous
  Country: US (occurrence: US)
  Receive Date: 20200625
  Receipt Date: 20200812
  Transmission Date: 20201103
  Serious: No
  Sender: FDA-Public Use
  Company Number: US-SA-2020SA159765

PATIENT

DRUGS (1)
  1. KEVZARA [Suspect]
     Active Substance: SARILUMAB
     Dosage: 200 MG, QOW
     Route: 058

REACTIONS (6)
  - Feeling hot [Unknown]
  - Nausea [Unknown]
  - Inflammation [Unknown]
  - Anxiety [Unknown]
  - Bone pain [Unknown]
  - Product dose omission issue [Unknown]
